FAERS Safety Report 8393992-X (Version None)
Quarter: 2012Q2

REPORT INFORMATION
  Report Type: 
  Country: None (occurrence: None)
  Receive Date: 20120530
  Receipt Date: 20120524
  Transmission Date: 20120825
  Serious: Yes (Other)
  Sender: FDA-Public Use
  Company Number: US-AMGEN-USASP2012033132

PATIENT
  Age: 36 Year
  Sex: Female

DRUGS (1)
  1. ENBREL [Suspect]
     Indication: RHEUMATOID ARTHRITIS
     Dosage: 50 MG, QWK
     Dates: start: 20080101, end: 20120301

REACTIONS (15)
  - HYPOAESTHESIA [None]
  - OSTEOPOROSIS [None]
  - PARAESTHESIA [None]
  - FLUID RETENTION [None]
  - HEADACHE [None]
  - DIZZINESS [None]
  - MOBILITY DECREASED [None]
  - IMPAIRED GASTRIC EMPTYING [None]
  - HEART RATE INCREASED [None]
  - WEIGHT INCREASED [None]
  - VISION BLURRED [None]
  - ASTHENIA [None]
  - FATIGUE [None]
  - DYSPNOEA [None]
  - BLOOD POTASSIUM DECREASED [None]
